FAERS Safety Report 23030293 (Version 2)
Quarter: 2023Q4

REPORT INFORMATION
  Report Type: Spontaneous
  Country: AU (occurrence: AU)
  Receive Date: 20231005
  Receipt Date: 20231031
  Transmission Date: 20240110
  Serious: Yes (Hospitalization)
  Sender: FDA-Public Use
  Company Number: AU-OCTA-GAM23123

PATIENT
  Sex: Female

DRUGS (7)
  1. OCTAGAM IMMUNE GLOBULIN (HUMAN) [Suspect]
     Active Substance: HUMAN IMMUNOGLOBULIN G
     Indication: Myotonic dystrophy
     Route: 042
     Dates: start: 20230918, end: 20230919
  2. HYDROCORTISONE [Concomitant]
     Active Substance: HYDROCORTISONE
     Indication: Premedication
     Route: 042
     Dates: start: 20230918, end: 20230919
  3. ONDANSETRON [Concomitant]
     Active Substance: ONDANSETRON
     Indication: Premedication
     Dates: start: 20230918, end: 20230918
  4. PROMETHAZINE [Concomitant]
     Active Substance: PROMETHAZINE HYDROCHLORIDE
     Indication: Premedication
     Dates: start: 20230918, end: 20230918
  5. SODIUM CHLORIDE [Concomitant]
     Active Substance: SODIUM CHLORIDE
     Indication: Premedication
     Dates: start: 20230919, end: 20230919
  6. LORATADINE [Concomitant]
     Active Substance: LORATADINE
     Indication: Premedication
     Route: 048
     Dates: start: 20230919, end: 20230919
  7. CYCLIZINE [Concomitant]
     Active Substance: CYCLIZINE
     Indication: Premedication
     Route: 042
     Dates: start: 20230919, end: 20230919

REACTIONS (10)
  - Dizziness [Recovered/Resolved]
  - Decreased appetite [Recovered/Resolved]
  - Headache [Recovered/Resolved]
  - Nausea [Recovered/Resolved]
  - Eye pain [Recovered/Resolved]
  - Hyperhidrosis [Recovered/Resolved]
  - Feeling of body temperature change [Recovered/Resolved]
  - Pyrexia [Recovered/Resolved]
  - Abdominal pain upper [Recovered/Resolved]
  - Intraocular pressure test [Recovered/Resolved]

NARRATIVE: CASE EVENT DATE: 20230918
